FAERS Safety Report 10480613 (Version 5)
Quarter: 2015Q2

REPORT INFORMATION
  Report Type: Report from Study
  Country: GB (occurrence: GB)
  Receive Date: 20140929
  Receipt Date: 20150504
  Transmission Date: 20150821
  Serious: Yes (Hospitalization)
  Sender: FDA-Public Use
  Company Number: GB-ROCHE-1467248

PATIENT
  Age: 38 Year
  Sex: Female
  Weight: 39.8 kg

DRUGS (7)
  1. BEVACIZUMAB [Suspect]
     Active Substance: BEVACIZUMAB
     Indication: OVARIAN CANCER
     Dosage: LAST DOSE PRIOR TO SAE: 20/JUN/2014
     Route: 042
     Dates: start: 20130827
  2. MAGNESIUM HYDROXIDE. [Concomitant]
     Active Substance: MAGNESIUM HYDROXIDE
     Dosage: 8 %
     Route: 065
     Dates: start: 20130423
  3. ZOPICLONE [Concomitant]
     Active Substance: ZOPICLONE
     Route: 065
     Dates: start: 20130423
  4. DIAZEPAM. [Concomitant]
     Active Substance: DIAZEPAM
     Route: 065
     Dates: start: 20130423
  5. SENOKOT [Concomitant]
     Active Substance: SENNOSIDES
     Route: 065
     Dates: start: 20130422
  6. DECAPEPTYL [Concomitant]
     Active Substance: TRIPTORELIN ACETATE
     Route: 065
     Dates: start: 20140213
  7. PARACETAMOL [Concomitant]
     Active Substance: ACETAMINOPHEN
     Route: 065
     Dates: start: 20130422

REACTIONS (2)
  - Urinary tract infection [Recovered/Resolved]
  - Haemoglobin decreased [Recovered/Resolved]

NARRATIVE: CASE EVENT DATE: 20140820
